FAERS Safety Report 19143246 (Version 1)
Quarter: 2021Q2

REPORT INFORMATION
  Report Type: Spontaneous
  Country: US (occurrence: US)
  Receive Date: 20210415
  Receipt Date: 20210415
  Transmission Date: 20210717
  Serious: No
  Sender: FDA-Public Use
  Company Number: US-TERSERA THERAPEUTICS LLC-2020TRS003714

PATIENT

DRUGS (3)
  1. XERMELO [Suspect]
     Active Substance: TELOTRISTAT ETHYL
     Indication: UTERINE CANCER
     Dosage: 250 MG, BID
     Route: 048
     Dates: start: 2020
  2. PANTOPRAZOLE [Concomitant]
     Active Substance: PANTOPRAZOLE
     Indication: PRODUCT USED FOR UNKNOWN INDICATION
     Dosage: 40 MG, BID
     Route: 065
  3. XERMELO [Suspect]
     Active Substance: TELOTRISTAT ETHYL
     Indication: NEUROENDOCRINE TUMOUR
     Dosage: 250 MG, TID
     Route: 048
     Dates: start: 20201021

REACTIONS (9)
  - Diarrhoea [Unknown]
  - Product dose omission issue [Unknown]
  - Nausea [Unknown]
  - Constipation [Unknown]
  - Off label use [Unknown]
  - Pain [Unknown]
  - Frequent bowel movements [Unknown]
  - Defaecation urgency [Unknown]
  - Flushing [Unknown]

NARRATIVE: CASE EVENT DATE: 2020
